FAERS Safety Report 11798457 (Version 2)
Quarter: 2016Q1

REPORT INFORMATION
  Report Type: Spontaneous
  Country: US (occurrence: US)
  Receive Date: 20151203
  Receipt Date: 20160104
  Transmission Date: 20160525
  Serious: Yes (Other)
  Sender: FDA-Public Use
  Company Number: US-BAYER-2015-475811

PATIENT
  Age: 66 Year
  Sex: Female

DRUGS (20)
  1. LOSARTAN. [Concomitant]
     Active Substance: LOSARTAN
  2. HYDROCODONE [Concomitant]
     Active Substance: HYDROCODONE
  3. VOLTAREN [Concomitant]
     Active Substance: DICLOFENAC SODIUM
  4. ALBUTEROL. [Concomitant]
     Active Substance: ALBUTEROL
  5. ATORVASTATIN [Concomitant]
     Active Substance: ATORVASTATIN
  6. SERTRALINE [Concomitant]
     Active Substance: SERTRALINE HYDROCHLORIDE
  7. TRAMADOL. [Concomitant]
     Active Substance: TRAMADOL
  8. WARFARIN [Concomitant]
     Active Substance: WARFARIN
  9. MODAFINIL. [Concomitant]
     Active Substance: MODAFINIL
  10. COZAAR [Suspect]
     Active Substance: LOSARTAN POTASSIUM
     Indication: PRODUCT USED FOR UNKNOWN INDICATION
     Dosage: UNK
     Route: 065
     Dates: end: 201511
  11. DIAZEPAM. [Concomitant]
     Active Substance: DIAZEPAM
  12. VERAPAMIL [Concomitant]
     Active Substance: VERAPAMIL HYDROCHLORIDE
  13. METFORMIN [Concomitant]
     Active Substance: METFORMIN HYDROCHLORIDE
  14. FUROSEMIDE. [Concomitant]
     Active Substance: FUROSEMIDE
  15. ADEMPAS [Suspect]
     Active Substance: RIOCIGUAT
     Indication: PULMONARY HYPERTENSION
     Dosage: 2 MG, TID
     Route: 065
  16. AMBRISENTAN [Suspect]
     Active Substance: AMBRISENTAN
     Indication: PULMONARY ARTERIAL HYPERTENSION
     Dosage: 5 MG, QD
     Route: 065
     Dates: start: 20150330, end: 20151104
  17. ORTHOVISC [Concomitant]
     Active Substance: HYALURONIC ACID
  18. TUDORZA PRESSAIR [Concomitant]
     Active Substance: ACLIDINIUM BROMIDE
  19. MONTELUKAST [Concomitant]
     Active Substance: MONTELUKAST SODIUM
  20. PANTOPRAZOLE [Concomitant]
     Active Substance: PANTOPRAZOLE SODIUM

REACTIONS (5)
  - Cataract [None]
  - Blood pressure diastolic decreased [None]
  - Gastroenteritis viral [Recovered/Resolved]
  - Fatigue [Recovering/Resolving]
  - Blood pressure systolic decreased [Not Recovered/Not Resolved]

NARRATIVE: CASE EVENT DATE: 201511
